FAERS Safety Report 23467085 (Version 2)
Quarter: 2024Q1

REPORT INFORMATION
  Report Type: Report from Study
  Country: CA (occurrence: CA)
  Receive Date: 20240201
  Receipt Date: 20240312
  Transmission Date: 20240410
  Serious: Yes (Other)
  Sender: FDA-Public Use
  Company Number: CA-BAUSCH-BL-2022-021951

PATIENT
  Sex: Female
  Weight: 75.737 kg

DRUGS (8)
  1. CONTRAVE [Suspect]
     Active Substance: BUPROPION HYDROCHLORIDE\NALTREXONE HYDROCHLORIDE
     Indication: Weight control
     Dosage: 90/8 MG
     Route: 048
  2. CONTRAVE [Suspect]
     Active Substance: BUPROPION HYDROCHLORIDE\NALTREXONE HYDROCHLORIDE
     Dosage: 90/8 MG, 2 TABS IN MORNING, 2 TABS IN EVENING
     Route: 048
     Dates: start: 202111, end: 20221017
  3. CONTRAVE [Suspect]
     Active Substance: BUPROPION HYDROCHLORIDE\NALTREXONE HYDROCHLORIDE
     Dosage: 90/8 MG, 1 TAB IN MORNING, 1 TAB IN EVENING (SECOND ATTEMPT) WEEK ONE
     Route: 048
     Dates: start: 20221117
  4. CONTRAVE [Suspect]
     Active Substance: BUPROPION HYDROCHLORIDE\NALTREXONE HYDROCHLORIDE
     Dosage: 90/8 MG, 2 TAB Q AM, 2 TABS Q PM (SECOND ATTEMPT)
     Route: 048
     Dates: start: 20221201
  5. HYDROMORPHONE [Concomitant]
     Active Substance: HYDROMORPHONE
     Indication: Product used for unknown indication
     Dosage: UNK
  6. LETROZOLE [Concomitant]
     Active Substance: LETROZOLE
     Indication: Neoplasm prophylaxis
     Dosage: 1 IN 2 D
     Route: 048
     Dates: start: 202212
  7. MAGNESIUM [Concomitant]
     Active Substance: MAGNESIUM
     Indication: Routine health maintenance
     Dosage: UNK
     Route: 048
  8. VITAMIN D [Concomitant]
     Active Substance: VITAMIN D NOS
     Indication: Routine health maintenance
     Dosage: UNK
     Route: 048

REACTIONS (22)
  - Mastectomy [Unknown]
  - Dental operation [Unknown]
  - Dysphemia [Recovered/Resolved]
  - Euphoric mood [Not Recovered/Not Resolved]
  - Hunger [Unknown]
  - Sciatica [Unknown]
  - Tooth extraction [Unknown]
  - Bruxism [Not Recovered/Not Resolved]
  - Haemorrhoids [Not Recovered/Not Resolved]
  - Arthralgia [Not Recovered/Not Resolved]
  - Symptom recurrence [Not Recovered/Not Resolved]
  - Nausea [Not Recovered/Not Resolved]
  - Tremor [Recovered/Resolved]
  - Memory impairment [Recovered/Resolved]
  - Vomiting [Recovered/Resolved]
  - Stress [Unknown]
  - Constipation [Unknown]
  - Therapeutic response unexpected [Unknown]
  - Therapy interrupted [Unknown]
  - Inability to afford medication [Unknown]
  - Intentional product use issue [Unknown]
  - Product use issue [Unknown]

NARRATIVE: CASE EVENT DATE: 20220101
